FAERS Safety Report 10527199 (Version 1)
Quarter: 2014Q4

REPORT INFORMATION
  Report Type: Spontaneous
  Country: US (occurrence: None)
  Receive Date: 20141017
  Receipt Date: 20141017
  Transmission Date: 20150528
  Serious: Yes (Hospitalization)
  Sender: FDA-Public Use
  Company Number: None

PATIENT
  Age: 55 Year
  Sex: Male
  Weight: 47.6 kg

DRUGS (7)
  1. PERCOCET [Concomitant]
     Active Substance: ACETAMINOPHEN\OXYCODONE HYDROCHLORIDE
  2. ELOXATIN [Suspect]
     Active Substance: OXALIPLATIN
  3. LEUCOVORIN CALCIUM. [Suspect]
     Active Substance: LEUCOVORIN CALCIUM
  4. 5-FLUOROURACIL (5-FU) [Suspect]
     Active Substance: FLUOROURACIL
  5. BEVACIZUMAB (RHUMAB VEGF) [Suspect]
     Active Substance: BEVACIZUMAB
  6. PRILOSEC [Concomitant]
     Active Substance: OMEPRAZOLE MAGNESIUM
  7. ZOFRAN [Concomitant]
     Active Substance: ONDANSETRON HYDROCHLORIDE

REACTIONS (6)
  - Hypocalcaemia [None]
  - Jaundice [None]
  - Hypokalaemia [None]
  - Abdominal pain [None]
  - Bacteraemia [None]
  - Haemoglobin decreased [None]

NARRATIVE: CASE EVENT DATE: 20111123
